FAERS Safety Report 11977588 (Version 2)
Quarter: 2016Q1

REPORT INFORMATION
  Report Type: Spontaneous
  Country: IT (occurrence: DE)
  Receive Date: 20160129
  Receipt Date: 20160217
  Transmission Date: 20160526
  Serious: Yes (Other)
  Sender: FDA-Public Use
  Company Number: IT-SIGMA-TAU US-2016STPI000054

PATIENT
  Age: 42 Year
  Sex: Male

DRUGS (3)
  1. LOMUSTINE. [Concomitant]
     Active Substance: LOMUSTINE
     Indication: BRAIN NEOPLASM
     Route: 065
  2. VINCRISTINE [Concomitant]
     Active Substance: VINCRISTINE
     Indication: BRAIN NEOPLASM
     Route: 065
  3. MATULANE [Suspect]
     Active Substance: PROCARBAZINE HYDROCHLORIDE
     Indication: ASTROCYTOMA
     Dosage: UNK, UNK 1 CYCLE
     Route: 048
     Dates: start: 20151012, end: 20151214

REACTIONS (1)
  - Gastrointestinal necrosis [Recovered/Resolved]

NARRATIVE: CASE EVENT DATE: 20151127
